FAERS Safety Report 5135624-X (Version None)
Quarter: 2006Q4

REPORT INFORMATION
  Report Type: 
  Country: None (occurrence: None)
  Receive Date: 20061026
  Receipt Date: 20061013
  Transmission Date: 20070319
  Serious: Yes (Other)
  Sender: FDA-Public Use
  Company Number: PHMT2006CA01963

PATIENT
  Age: 51 Year
  Sex: Female

DRUGS (2)
  1. DIOVAN [Suspect]
     Dosage: 80MG
     Route: 048
     Dates: start: 20040501, end: 20050601
  2. DIOVAN [Suspect]
     Dosage: 160MG
     Route: 048
     Dates: start: 20050601, end: 20051101

REACTIONS (4)
  - ALVEOLITIS [None]
  - DYSPNOEA [None]
  - PNEUMONITIS [None]
  - RALES [None]
